FAERS Safety Report 6396339-3 (Version None)
Quarter: 2009Q4

REPORT INFORMATION
  Report Type: 
  Country: None (occurrence: None)
  Receive Date: 20091012
  Receipt Date: 20090928
  Transmission Date: 20100525
  Serious: Yes (Other)
  Sender: FDA-Public Use
  Company Number: PHHY2009JP39938

PATIENT
  Age: 60 Year
  Sex: Male

DRUGS (1)
  1. GLEEVEC [Suspect]
     Indication: CHRONIC MYELOID LEUKAEMIA
     Dosage: 400 MG/DAY

REACTIONS (7)
  - ANAEMIA [None]
  - CHROMOSOME ANALYSIS ABNORMAL [None]
  - GENE MUTATION IDENTIFICATION TEST POSITIVE [None]
  - LYMPHADENOPATHY [None]
  - LYMPHOCYTE COUNT ABNORMAL [None]
  - MANTLE CELL LYMPHOMA [None]
  - SPLEEN PALPABLE [None]
